FAERS Safety Report 4850951-9 (Version None)
Quarter: 2005Q4

REPORT INFORMATION
  Report Type: 
  Country: None (occurrence: None)
  Receive Date: 20051209
  Receipt Date: 20051209
  Transmission Date: 20060501
  Serious: Yes (Other)
  Sender: FDA-Public Use
  Company Number: None

PATIENT
  Age: 87 Year
  Sex: Male
  Weight: 120 kg

DRUGS (1)
  1. TERAZOSIN   10MG  DAILY [Suspect]
     Indication: BENIGN PROSTATIC HYPERPLASIA
     Dosage: 10MG DAILY
     Dates: start: 20040201, end: 20050601

REACTIONS (1)
  - ORTHOSTATIC HYPOTENSION [None]
